FAERS Safety Report 8368364-4 (Version None)
Quarter: 2012Q2

REPORT INFORMATION
  Report Type: 
  Country: None (occurrence: None)
  Receive Date: 20120517
  Receipt Date: 20120507
  Transmission Date: 20120825
  Serious: Yes (Hospitalization)
  Sender: FDA-Public Use
  Company Number: DE-ELI_LILLY_AND_COMPANY-DE201205001866

PATIENT
  Sex: Female

DRUGS (7)
  1. FORTEO [Suspect]
     Indication: OSTEOPOROSIS
     Dosage: UNK, QD
     Route: 058
     Dates: start: 20101118
  2. CALCIUM [Concomitant]
  3. VITAMIN D [Concomitant]
  4. METHOTREXATE [Concomitant]
     Dosage: 15 MG, UNK
  5. ANTIHYPERTENSIVES [Concomitant]
  6. ANALGESICS [Concomitant]
  7. PREDNISOLONE [Concomitant]
     Dosage: 5 MG, UNK

REACTIONS (1)
  - BLADDER DISORDER [None]
